FAERS Safety Report 9786200 (Version 1)
Quarter: 2013Q4

REPORT INFORMATION
  Report Type: Spontaneous
  Country: IT (occurrence: None)
  Receive Date: 20131224
  Receipt Date: 20131224
  Transmission Date: 20140711
  Serious: Yes (Death)
  Sender: FDA-Public Use
  Company Number: 2013IT00840

PATIENT
  Sex: Female

DRUGS (6)
  1. CARBOPLATIN (CARBOPLATIN) INJECTION [Suspect]
     Indication: PRIMITIVE NEUROECTODERMAL TUMOUR
  2. HYPERFRACTIONATED ACCELERATED CRANIOSPINAL IRRADIATION(HYPERFRACTIONATED ACCELERATED CRANIOSPINAL IRRADIATION) [Suspect]
     Indication: PRIMITIVE NEUROECTODERMAL TUMOUR
  3. THIOTEPA (THIOTEPA) [Suspect]
     Indication: PRIMITIVE NEUROECTODERMAL TUMOUR
     Dosage: 300 MG/DAY, FOR 3 DAYS, SEPARATED BY AN INTERVAL OF 5-6 WEEKS
  4. ETOPOSIDE (ETOPOSIDE) [Suspect]
     Indication: PRIMITIVE NEUROECTODERMAL TUMOUR
     Dosage: 2.4 G/M2. 1 WEEK
  5. CYCLOPHOSPHAMIDE (CYCLOPHOSPHAMIDE) [Suspect]
     Indication: PRIMITIVE NEUROECTODERMAL TUMOUR
     Dosage: 4 G/M2, 4 WEEL
  6. METHOTREXATE (METHOTREXATE) [Suspect]
     Indication: PRIMITIVE NEUROECTODERMAL TUMOUR
     Dosage: 8 G/M2

REACTIONS (1)
  - Acute myeloid leukaemia [None]
